FAERS Safety Report 12111038 (Version 1)
Quarter: 2016Q1

REPORT INFORMATION
  Report Type: Spontaneous
  Country: US (occurrence: None)
  Receive Date: 20160224
  Receipt Date: 20160224
  Transmission Date: 20160526
  Serious: Yes (Other)
  Sender: FDA-Public Use
  Company Number: None

PATIENT
  Age: 58 Day
  Sex: Female
  Weight: 74.39 kg

DRUGS (11)
  1. CO-10 [Concomitant]
  2. MULTI VITAMIN [Concomitant]
     Active Substance: VITAMINS
  3. ALLER-FEX [Concomitant]
  4. 5HTP [Concomitant]
  5. GRASTEK [Suspect]
     Active Substance: PHLEUM PRATENSE POLLEN
     Indication: MULTIPLE ALLERGIES
     Dosage: 1 PILL ONCE DAILY TAKEN UNDER THE TONGUE
     Route: 048
     Dates: start: 20160207, end: 20160217
  6. PREMORINE [Concomitant]
  7. GABA [Concomitant]
     Active Substance: .GAMMA.-AMINOBUTYRIC ACID
  8. RED YEAST RICE [Concomitant]
     Active Substance: DIETARY SUPPLEMENT
  9. NIACIN. [Concomitant]
     Active Substance: NIACIN
  10. ST JOHNS WORT [Concomitant]
     Active Substance: ST. JOHN^S WORT
  11. BLACK CURRANT OIL [Concomitant]

REACTIONS (2)
  - Anaphylactic reaction [None]
  - Fear [None]

NARRATIVE: CASE EVENT DATE: 20160217
